FAERS Safety Report 9674850 (Version 2)
Quarter: 2013Q4

REPORT INFORMATION
  Report Type: Spontaneous
  Country: US (occurrence: US)
  Receive Date: 20131107
  Receipt Date: 20131126
  Transmission Date: 20140711
  Serious: Yes (Congenital Anomaly)
  Sender: FDA-Public Use
  Company Number: US-JNJFOC-20131017200

PATIENT
  Sex: 0

DRUGS (3)
  1. PREZISTA [Suspect]
     Indication: ANTIVIRAL TREATMENT
     Route: 064
     Dates: start: 20120224
  2. NORVIR [Suspect]
     Indication: ANTIVIRAL TREATMENT
     Route: 064
     Dates: start: 20120224
  3. TRUVADA [Suspect]
     Indication: ANTIVIRAL TREATMENT
     Route: 064
     Dates: start: 20120224

REACTIONS (2)
  - Alpha 1 foetoprotein abnormal [Unknown]
  - Foetal exposure during pregnancy [Unknown]
